FAERS Safety Report 6022936-0 (Version None)
Quarter: 2008Q4

REPORT INFORMATION
  Report Type: 
  Country: None (occurrence: None)
  Receive Date: 20081230
  Receipt Date: 20081218
  Transmission Date: 20090506
  Serious: Yes (Death)
  Sender: FDA-Public Use
  Company Number: US-JNJCH-2008058152

PATIENT
  Age: 32 Year
  Sex: Male

DRUGS (8)
  1. DIPHENHYDRAMINE HCL [Suspect]
     Indication: SUICIDE ATTEMPT
     Dosage: TEXT:UNSPECIFIED
     Route: 048
  2. MARIJUANA [Suspect]
     Indication: SUICIDE ATTEMPT
     Dosage: TEXT:UNSPECIFIED
     Route: 048
  3. LITHIUM [Suspect]
     Indication: SUICIDE ATTEMPT
     Dosage: TEXT:UNSPECIFIED
     Route: 048
  4. SERTRALINE [Suspect]
     Indication: SUICIDE ATTEMPT
     Dosage: TEXT:UNSPECIFIED
     Route: 048
  5. QUETIAPINE [Suspect]
     Indication: SUICIDE ATTEMPT
     Dosage: TEXT:UNSPECIFIED
     Route: 048
  6. METHADON HCL TAB [Suspect]
     Indication: SUICIDE ATTEMPT
     Dosage: TEXT:UNSPECIFIED
     Route: 048
  7. HYDROCODONE BITARTRATE + ACETAMINOPHEN [Suspect]
     Indication: SUICIDE ATTEMPT
     Dosage: TEXT:UNSPECIFIED
     Route: 048
  8. CLONAZEPAM [Suspect]
     Indication: SUICIDE ATTEMPT
     Dosage: TEXT:UNSPECIFIED
     Route: 048

REACTIONS (2)
  - COMPLETED SUICIDE [None]
  - DRUG TOXICITY [None]
